FAERS Safety Report 16901799 (Version 1)
Quarter: 2019Q4

REPORT INFORMATION
  Report Type: Spontaneous
  Country: JP (occurrence: JP)
  Receive Date: 20191010
  Receipt Date: 20191010
  Transmission Date: 20200122
  Serious: Yes (Hospitalization, Other)
  Sender: FDA-Public Use
  Company Number: JP-TEVA-2019-JP-1116048

PATIENT
  Age: 85 Year
  Sex: Male

DRUGS (6)
  1. ELOBIXIBAT [Concomitant]
     Active Substance: ELOBIXIBAT
  2. MENESIT [Concomitant]
     Active Substance: CARBIDOPA\LEVODOPA
  3. NOURIAST [Concomitant]
     Active Substance: ISTRADEFYLLINE
  4. AZILECT [Suspect]
     Active Substance: RASAGILINE MESYLATE
     Indication: PARKINSON^S DISEASE
     Dosage: 1 MILLIGRAM DAILY;
     Route: 048
     Dates: start: 20190916, end: 20190925
  5. TANDOSPIRONE CITRATE [Concomitant]
     Active Substance: TANDOSPIRONE CITRATE
  6. SYMMETREL [Concomitant]
     Active Substance: AMANTADINE HYDROCHLORIDE

REACTIONS (3)
  - Fall [Not Recovered/Not Resolved]
  - Fracture [Not Recovered/Not Resolved]
  - Respiratory failure [Unknown]

NARRATIVE: CASE EVENT DATE: 20190916
